FAERS Safety Report 11741419 (Version 1)
Quarter: 2015Q4

REPORT INFORMATION
  Report Type: Report from Study
  Country: HU (occurrence: HU)
  Receive Date: 20151116
  Receipt Date: 20151116
  Transmission Date: 20160304
  Serious: Yes (Death)
  Sender: FDA-Public Use
  Company Number: HU-ROCHE-1661556

PATIENT
  Sex: Male

DRUGS (1)
  1. CAPECITABINE. [Suspect]
     Active Substance: CAPECITABINE
     Indication: COLORECTAL CANCER
     Route: 048
     Dates: start: 20120711, end: 20121121

REACTIONS (2)
  - Atrial fibrillation [Fatal]
  - Cardiac failure [Fatal]
